FAERS Safety Report 10339883 (Version 2)
Quarter: 2014Q4

REPORT INFORMATION
  Report Type: Spontaneous
  Country: GB (occurrence: GB)
  Receive Date: 20140724
  Receipt Date: 20141016
  Transmission Date: 20150528
  Serious: Yes (Hospitalization, Other)
  Sender: FDA-Public Use
  Company Number: PHHY2014GB087575

PATIENT
  Sex: Female

DRUGS (4)
  1. VALPROATE SODIUM. [Suspect]
     Active Substance: VALPROATE SODIUM
     Dosage: 1.4 G
  2. AUDEN MCKENZIE CLONAZEPAM [Suspect]
     Active Substance: CLONAZEPAM
     Indication: BIPOLAR DISORDER
     Dosage: 2 MG
     Route: 048
  3. RISPERIDONE. [Suspect]
     Active Substance: RISPERIDONE
     Dosage: 5 MG
  4. ABILIFY [Suspect]
     Active Substance: ARIPIPRAZOLE
     Dosage: 5 MG

REACTIONS (8)
  - Off label use [Unknown]
  - Psychotic disorder [Not Recovered/Not Resolved]
  - Hallucination [Unknown]
  - Delusion [Unknown]
  - Palpitations [Unknown]
  - Muscle spasms [Unknown]
  - Mania [Not Recovered/Not Resolved]
  - Drug withdrawal syndrome [Unknown]
